FAERS Safety Report 9482521 (Version 1)
Quarter: 2013Q3

REPORT INFORMATION
  Report Type: Spontaneous
  Country: FR (occurrence: FR)
  Receive Date: 20130828
  Receipt Date: 20130828
  Transmission Date: 20140515
  Serious: Yes (Hospitalization)
  Sender: FDA-Public Use
  Company Number: FR-SANOFI-AVENTIS-2013SA084365

PATIENT
  Age: 57 Year
  Sex: Male

DRUGS (9)
  1. PLAVIX [Suspect]
     Indication: PRODUCT USED FOR UNKNOWN INDICATION
     Route: 048
     Dates: start: 2012, end: 20130803
  2. DEROXAT [Suspect]
     Indication: PRODUCT USED FOR UNKNOWN INDICATION
     Route: 048
  3. GLUCOPHAGE [Concomitant]
  4. COAPROVEL [Concomitant]
  5. ISOPTINE [Concomitant]
  6. MEDIATENSYL [Concomitant]
  7. TAHOR [Concomitant]
     Dates: end: 20130805
  8. LANZOR [Concomitant]
  9. EFFERALGAN [Concomitant]

REACTIONS (6)
  - Haematemesis [Recovered/Resolved]
  - Anaemia [Recovered/Resolved]
  - Tachycardia [Recovered/Resolved]
  - Melaena [Recovered/Resolved]
  - Rectal haemorrhage [Recovered/Resolved]
  - Hypotension [Recovered/Resolved]
